FAERS Safety Report 6836377-7 (Version None)
Quarter: 2010Q3

REPORT INFORMATION
  Report Type: 
  Country: None (occurrence: None)
  Receive Date: 20100713
  Receipt Date: 20100630
  Transmission Date: 20110219
  Serious: Yes (Other)
  Sender: FDA-Public Use
  Company Number: US-ELI_LILLY_AND_COMPANY-US201007000508

PATIENT
  Age: 58 Year
  Sex: Male

DRUGS (6)
  1. CYMBALTA [Suspect]
     Indication: PAIN
     Dosage: 30 MG, DAILY (1/D)
     Dates: start: 20100625
  2. LIPITOR [Concomitant]
     Dosage: 10 MG, UNK
  3. PRILOSEC [Concomitant]
  4. ZOCOR [Concomitant]
  5. LYRICA [Concomitant]
  6. AMBIEN [Concomitant]
     Indication: SLEEP DISORDER

REACTIONS (5)
  - FATIGUE [None]
  - HEADACHE [None]
  - HYPERTENSION [None]
  - INSOMNIA [None]
  - ROAD TRAFFIC ACCIDENT [None]
